FAERS Safety Report 6756856-0 (Version None)
Quarter: 2010Q2

REPORT INFORMATION
  Report Type: 
  Country: None (occurrence: None)
  Receive Date: 20100604
  Receipt Date: 20100525
  Transmission Date: 20101027
  Serious: Yes (Hospitalization)
  Sender: FDA-Public Use
  Company Number: US-JNJCH-2010013084

PATIENT
  Age: 52 Year
  Sex: Female
  Weight: 77.1 kg

DRUGS (1)
  1. SUDAFED PE COLD + COUGH CAPLETS [Suspect]
     Indication: PYREXIA
     Dosage: TEXT:TWO CAPLETS EVERY FOUR HOURS
     Route: 048
     Dates: start: 20090103, end: 20090105

REACTIONS (4)
  - FALL [None]
  - SYNCOPE [None]
  - TOOTH FRACTURE [None]
  - TOOTH INJURY [None]
